FAERS Safety Report 5716172-2 (Version None)
Quarter: 2008Q2

REPORT INFORMATION
  Report Type: 
  Country: None (occurrence: None)
  Receive Date: 20080424
  Receipt Date: 20080417
  Transmission Date: 20081010
  Serious: Yes (Other)
  Sender: FDA-Public Use
  Company Number: PHBS2008IN04183

PATIENT
  Age: 31 Year
  Sex: Female

DRUGS (3)
  1. IRON SUPPLEMENTS [Concomitant]
     Route: 065
  2. FOLIC ACID [Concomitant]
     Route: 065
  3. IMATINIB [Suspect]
     Indication: CHRONIC MYELOID LEUKAEMIA
     Dosage: 400 MG/D
     Route: 065
     Dates: start: 20030601, end: 20040401

REACTIONS (4)
  - AMENORRHOEA [None]
  - DRUG EXPOSURE DURING PREGNANCY [None]
  - PREMATURE LABOUR [None]
  - TWIN PREGNANCY [None]
